FAERS Safety Report 9510530 (Version 1)
Quarter: 2013Q3

REPORT INFORMATION
  Report Type: Spontaneous
  Country: US (occurrence: US)
  Receive Date: 20130909
  Receipt Date: 20130909
  Transmission Date: 20140515
  Serious: Yes (Other)
  Sender: FDA-Public Use
  Company Number: PHEH2013US018751

PATIENT
  Sex: Female

DRUGS (4)
  1. FANAPT [Suspect]
     Dosage: UNK UKN, UNK
     Dates: end: 20130829
  2. SEROQUEL [Suspect]
     Dosage: 50 MG, UNK
  3. SEROQUEL [Suspect]
     Dosage: 300 MG UNK
  4. KLONOPIN [Concomitant]
     Dosage: UNK UKN, UNK

REACTIONS (6)
  - Withdrawal syndrome [Unknown]
  - Nausea [Unknown]
  - Delusion [Unknown]
  - Fatigue [Unknown]
  - Dizziness [Unknown]
  - Abdominal discomfort [Unknown]
